FAERS Safety Report 25051534 (Version 1)
Quarter: 2025Q1

REPORT INFORMATION
  Report Type: Spontaneous
  Country: US (occurrence: US)
  Receive Date: 20250307
  Receipt Date: 20250307
  Transmission Date: 20250409
  Serious: Yes (Death)
  Sender: MERCK SHARP & DOHME LLC
  Company Number: US-009507513-2260049

PATIENT
  Age: 64 Year
  Sex: Female

DRUGS (2)
  1. KEYTRUDA [Suspect]
     Active Substance: PEMBROLIZUMAB
     Indication: Lung neoplasm malignant
  2. CARBOPLATIN [Concomitant]
     Active Substance: CARBOPLATIN

REACTIONS (1)
  - Myocarditis [Fatal]
